FAERS Safety Report 4728441-3 (Version None)
Quarter: 2005Q3

REPORT INFORMATION
  Report Type: 
  Country: None (occurrence: None)
  Receive Date: 20050729
  Receipt Date: 20050331
  Transmission Date: 20060218
  Serious: No
  Sender: FDA-Public Use
  Company Number: US-GLAXOSMITHKLINE-A0552160A

PATIENT
  Age: 5 Month
  Sex: Female
  Weight: 8.1 kg

DRUGS (1)
  1. ZANTAC [Suspect]
     Dosage: 1CC TWICE PER DAY
     Route: 048
     Dates: start: 20041124, end: 20050309

REACTIONS (7)
  - ACIDOSIS [None]
  - ALOPECIA [None]
  - ECZEMA INFANTILE [None]
  - HYPERCHLORAEMIA [None]
  - OTITIS MEDIA [None]
  - UPPER RESPIRATORY TRACT INFECTION [None]
  - URTICARIA [None]
